FAERS Safety Report 4653844-5 (Version None)
Quarter: 2005Q2

REPORT INFORMATION
  Report Type: 
  Country: None (occurrence: None)
  Receive Date: 20050504
  Receipt Date: 20050419
  Transmission Date: 20051028
  Serious: Yes (Other)
  Sender: FDA-Public Use
  Company Number: 2005BI007135

PATIENT
  Sex: Male

DRUGS (2)
  1. AVONEX [Suspect]
     Indication: MULTIPLE SCLEROSIS
     Dosage: 30 UG QW IM
     Route: 030
     Dates: start: 19990101
  2. AVONEX [Suspect]
     Indication: MULTIPLE SCLEROSIS
     Dosage: 30 UG QW IM
     Route: 030

REACTIONS (6)
  - AMNESIA [None]
  - CARDIAC DISORDER [None]
  - CARDIAC VALVE DISEASE [None]
  - HYPOAESTHESIA [None]
  - MENTAL IMPAIRMENT [None]
  - PAIN IN EXTREMITY [None]
